FAERS Safety Report 8991201 (Version 1)
Quarter: 2012Q4

REPORT INFORMATION
  Report Type: Spontaneous
  Country: US (occurrence: None)
  Receive Date: 20121219
  Receipt Date: 20121219
  Transmission Date: 20130627
  Serious: Yes (Other)
  Sender: FDA-Public Use
  Company Number: AUR-APL-2012-05456

PATIENT
  Age: 68 Year
  Sex: Female

DRUGS (3)
  1. ONDANSETRON [Suspect]
     Indication: NAUSEA
  2. LORAZEPAM (LORAZEPAM) [Suspect]
     Indication: NAUSEA
  3. PROCHLORPERAZINE [Suspect]
     Indication: NAUSEA

REACTIONS (2)
  - Dehydration [None]
  - No therapeutic response [None]
